FAERS Safety Report 5197885-0 (Version None)
Quarter: 2006Q4

REPORT INFORMATION
  Report Type: 
  Country: None (occurrence: None)
  Receive Date: 20061228
  Receipt Date: 20061219
  Transmission Date: 20070319
  Serious: Yes (Hospitalization)
  Sender: FDA-Public Use
  Company Number: 163-C5013-06080222

PATIENT
  Age: 61 Year
  Sex: Female
  Weight: 81.4207 kg

DRUGS (13)
  1. CC-5013 (LENALIDOMIDE) (CAPSULES) [Suspect]
     Indication: MULTIPLE MYELOMA
     Dosage: 25 MG, 1 IN 1 D, ORAL
     Route: 048
     Dates: start: 20060628, end: 20060718
  2. DEXAMETHASONE TAB [Suspect]
     Indication: MULTIPLE MYELOMA
     Dosage: ORAL
     Route: 048
     Dates: start: 20060628, end: 20060718
  3. HYDROCHLOROTHIAZIDE [Concomitant]
  4. GABAPENTIN [Concomitant]
  5. FAMVIR [Concomitant]
  6. RANITIDINE [Concomitant]
  7. ATENOLOL [Concomitant]
  8. OAT BRAN [Concomitant]
  9. K-DUR 10 [Concomitant]
  10. VITAMIN B (VITAMIN B) [Concomitant]
  11. FISH OIL (FISH OIL) [Concomitant]
  12. PROCRIT [Concomitant]
  13. MORPHINE SULFATE [Concomitant]

REACTIONS (3)
  - HYPERTENSION [None]
  - OEDEMA [None]
  - RENAL FAILURE [None]
